FAERS Safety Report 16598345 (Version 1)
Quarter: 2019Q3

REPORT INFORMATION
  Report Type: Spontaneous
  Country: US (occurrence: US)
  Receive Date: 20190719
  Receipt Date: 20190719
  Transmission Date: 20191004
  Serious: No
  Sender: FDA-Public Use
  Company Number: US-GLAXOSMITHKLINE-US2019125698

PATIENT
  Age: 73 Year
  Sex: Male

DRUGS (1)
  1. FLONASE [Suspect]
     Active Substance: FLUTICASONE PROPIONATE
     Indication: HYPERSENSITIVITY
     Dosage: I USED ONE SPRAY IN ONE NOSTRIL AND STOPPED

REACTIONS (3)
  - Seasonal allergy [Unknown]
  - Parosmia [Recovered/Resolved]
  - Incorrect dose administered [Unknown]
